FAERS Safety Report 25498977 (Version 1)
Quarter: 2025Q3

REPORT INFORMATION
  Report Type: Spontaneous
  Country: US (occurrence: US)
  Receive Date: 20250701
  Receipt Date: 20250701
  Transmission Date: 20251020
  Serious: No
  Sender: PFIZER
  Company Number: US-PFIZER INC-202400267367

PATIENT
  Age: 79 Year
  Sex: Female

DRUGS (6)
  1. TUKYSA [Suspect]
     Active Substance: TUCATINIB
     Indication: Breast cancer metastatic
     Dosage: 250 MGS ORALLY 2X A DAY
     Route: 048
  2. TUKYSA [Suspect]
     Active Substance: TUCATINIB
  3. TUKYSA [Suspect]
     Active Substance: TUCATINIB
  4. TUKYSA [Suspect]
     Active Substance: TUCATINIB
     Dosage: 1 150MG TABLET BY MOUTH 2 TIMES DAILY
     Route: 048
  5. TUKYSA [Suspect]
     Active Substance: TUCATINIB
     Dosage: 2 50MG TABLETS BY MOUTH 2 TIMES DAILY
     Route: 048
  6. CAPECITABINE [Suspect]
     Active Substance: CAPECITABINE
     Indication: Breast cancer metastatic

REACTIONS (2)
  - Thinking abnormal [Unknown]
  - Off label use [Unknown]
